FAERS Safety Report 11232847 (Version 1)
Quarter: 2015Q3

REPORT INFORMATION
  Report Type: Spontaneous
  Country: US (occurrence: US)
  Receive Date: 20150701
  Receipt Date: 20150701
  Transmission Date: 20151125
  Serious: No
  Sender: FDA-Public Use
  Company Number: ALCN2015US004022

PATIENT
  Sex: Male

DRUGS (1)
  1. ILEVRO [Suspect]
     Active Substance: NEPAFENAC
     Indication: EYE INFLAMMATION
     Dosage: 1 GTT, BID
     Route: 047
     Dates: start: 201506

REACTIONS (1)
  - Off label use [Unknown]
